FAERS Safety Report 4602995-X (Version None)
Quarter: 2005Q1

REPORT INFORMATION
  Report Type: 
  Country: None (occurrence: None)
  Receive Date: 20050307
  Receipt Date: 20050218
  Transmission Date: 20050727
  Serious: Yes (Hospitalization, Other)
  Sender: FDA-Public Use
  Company Number: 2005035736

PATIENT
  Age: 63 Year
  Sex: Female

DRUGS (8)
  1. ZELDOX (CAPSULES) (ZIPRASIDONE) [Suspect]
     Indication: SCHIZOAFFECTIVE DISORDER
     Dosage: 80 MG (1 D), ORAL
     Route: 048
     Dates: end: 20040122
  2. ARICEPT [Suspect]
     Indication: ILL-DEFINED DISORDER
     Dosage: 10 MG (1 D), ORAL
     Route: 048
  3. QUETIAPINE FUMARATE (QUETIAPINE FUMARATE) [Suspect]
     Indication: ILL-DEFINED DISORDER
     Dosage: 400 MG (1 D)
     Dates: start: 20031211, end: 20040116
  4. LORAZEPAM [Suspect]
     Indication: ILL-DEFINED DISORDER
     Dosage: 6 MG (1 D)
     Dates: start: 20031211
  5. TRAZODONE HCL [Suspect]
     Indication: ILL-DEFINED DISORDER
     Dosage: 400 MG (1 D)
     Dates: start: 20040106, end: 20040507
  6. HALOPERIDOL [Suspect]
     Indication: ILL-DEFINED DISORDER
     Dosage: 6 MG (1 D)
     Dates: start: 20040118, end: 20040121
  7. LITHIUM ACETATE (LITHIUM ACETATE) [Concomitant]
  8. OLANZAPINE [Concomitant]

REACTIONS (9)
  - BODY TEMPERATURE INCREASED [None]
  - CHILLS [None]
  - DELIRIUM [None]
  - DIARRHOEA [None]
  - DRUG INTERACTION [None]
  - HAEMODIALYSIS [None]
  - NEUROLEPTIC MALIGNANT SYNDROME [None]
  - RENAL FAILURE ACUTE [None]
  - RHABDOMYOLYSIS [None]
